FAERS Safety Report 21697402 (Version 1)
Quarter: 2022Q4

REPORT INFORMATION
  Report Type: Other
  Country: CN (occurrence: None)
  Receive Date: 20221208
  Receipt Date: 20221208
  Transmission Date: 20230113
  Serious: Yes (Other)
  Sender: FDA-Public Use
  Company Number: CN-ROCHE-1937277

PATIENT
  Age: 75 Year
  Sex: Male
  Weight: 53 kg

DRUGS (1)
  1. AVASTIN [Suspect]
     Active Substance: BEVACIZUMAB
     Indication: Non-small cell lung cancer
     Route: 041
     Dates: start: 20160425

REACTIONS (5)
  - Nasopharyngitis [Unknown]
  - Paracentesis [Recovered/Resolved]
  - Bronchitis [Not Recovered/Not Resolved]
  - Neoplasm [Not Recovered/Not Resolved]
  - Pericardial effusion [Not Recovered/Not Resolved]

NARRATIVE: CASE EVENT DATE: 20200601
